FAERS Safety Report 7199141-8 (Version None)
Quarter: 2010Q4

REPORT INFORMATION
  Report Type: 
  Country: None (occurrence: None)
  Receive Date: 20101223
  Receipt Date: 20101223
  Transmission Date: 20110411
  Serious: Yes (Other)
  Sender: FDA-Public Use
  Company Number: None

PATIENT
  Age: 49 Year
  Sex: Female
  Weight: 70.7611 kg

DRUGS (3)
  1. EMBEDA [Suspect]
     Indication: ARTHRITIS
     Dosage: 1 CAP 103 TIME/DAY PO
     Route: 048
     Dates: start: 20101210, end: 20101221
  2. EMBEDA [Suspect]
     Indication: INTERVERTEBRAL DISC PROTRUSION
     Dosage: 1 CAP 103 TIME/DAY PO
     Route: 048
     Dates: start: 20101210, end: 20101221
  3. EMBEDA [Suspect]
     Indication: PAIN
     Dosage: 1 CAP 103 TIME/DAY PO
     Route: 048
     Dates: start: 20101210, end: 20101221

REACTIONS (6)
  - ARTHRALGIA [None]
  - ASTHENIA [None]
  - CONSTIPATION [None]
  - HEADACHE [None]
  - PRURITUS [None]
  - WITHDRAWAL SYNDROME [None]
